FAERS Safety Report 5232501-0 (Version None)
Quarter: 2007Q1

REPORT INFORMATION
  Report Type: 
  Country: None (occurrence: None)
  Receive Date: 20061204
  Receipt Date: 20060901
  Transmission Date: 20070707
  Serious: No
  Sender: FDA-Public Use
  Company Number: 2006-BP-10214BP

PATIENT
  Age: 72 Year
  Sex: Female

DRUGS (1)
  1. SPIRIVA [Suspect]
     Dosage: (18 MCG),IH

REACTIONS (4)
  - DRY MOUTH [None]
  - DRY THROAT [None]
  - INCORRECT ROUTE OF DRUG ADMINISTRATION [None]
  - THIRST [None]
